FAERS Safety Report 5798146-9 (Version None)
Quarter: 2008Q3

REPORT INFORMATION
  Report Type: 
  Country: None (occurrence: None)
  Receive Date: 20080702
  Receipt Date: 20080630
  Transmission Date: 20090109
  Serious: Yes (Other)
  Sender: FDA-Public Use
  Company Number: A0735313A

PATIENT
  Age: 24 Year
  Sex: Female

DRUGS (3)
  1. ALLI [Suspect]
  2. LEVOTHYROXINE SODIUM [Suspect]
  3. NO CONCURRENT MEDICATION [Concomitant]

REACTIONS (7)
  - DIARRHOEA [None]
  - FAECAL VOLUME DECREASED [None]
  - FAECES HARD [None]
  - GASTROOESOPHAGEAL REFLUX DISEASE [None]
  - HYPOTHYROIDISM [None]
  - OROPHARYNGEAL PAIN [None]
  - PHARYNGEAL DISORDER [None]
